FAERS Safety Report 25063571 (Version 2)
Quarter: 2025Q2

REPORT INFORMATION
  Report Type: Spontaneous
  Country: JP (occurrence: JP)
  Receive Date: 20250311
  Receipt Date: 20250429
  Transmission Date: 20250716
  Serious: Yes (Hospitalization)
  Sender: PFIZER
  Company Number: JP-PFIZER INC-PV202500028501

PATIENT
  Age: 84 Year
  Sex: Male

DRUGS (2)
  1. TAFAMIDIS [Suspect]
     Active Substance: TAFAMIDIS
     Indication: Cardiac amyloidosis
     Route: 048
  2. DAYVIGO [Concomitant]
     Active Substance: LEMBOREXANT

REACTIONS (2)
  - Decreased appetite [Unknown]
  - Vomiting [Unknown]
